FAERS Safety Report 4321079-1 (Version None)
Quarter: 2004Q1

REPORT INFORMATION
  Report Type: 
  Country: None (occurrence: None)
  Receive Date: 20040322
  Receipt Date: 20040322
  Transmission Date: 20041129
  Serious: Yes (Life-Threatening)
  Sender: FDA-Public Use
  Company Number: None

PATIENT
  Age: 78 Year
  Sex: Female
  Weight: 65.318 kg

DRUGS (1)
  1. ZOFRAN [Suspect]
     Indication: NAUSEA
     Dosage: 2 MG IV X 1
     Route: 042
     Dates: start: 20040319

REACTIONS (7)
  - ANXIETY [None]
  - BRONCHOSPASM [None]
  - DYSKINESIA [None]
  - DYSTONIA [None]
  - FORMICATION [None]
  - GRAND MAL CONVULSION [None]
  - NASAL CONGESTION [None]
